FAERS Safety Report 7521188-X (Version None)
Quarter: 2011Q2

REPORT INFORMATION
  Report Type: 
  Country: None (occurrence: None)
  Receive Date: 20110603
  Receipt Date: 20101123
  Transmission Date: 20111010
  Serious: Yes (Other)
  Sender: FDA-Public Use
  Company Number: US-BAYER-2010-000410

PATIENT
  Age: 82 Year
  Sex: Female

DRUGS (7)
  1. COUMADIN [Suspect]
     Indication: THROMBOSIS
     Dosage: UNK
     Dates: start: 20100101
  2. COUMADIN [Suspect]
     Indication: MYOCARDIAL INFARCTION
  3. PLAVIX [Suspect]
     Indication: MYOCARDIAL INFARCTION
     Dosage: UNK
     Dates: start: 20100101
  4. ASPIRIN [Suspect]
     Indication: MYOCARDIAL INFARCTION
  5. PLAVIX [Suspect]
     Indication: THROMBOSIS
  6. DIOVANE [Concomitant]
  7. ASPIRIN [Suspect]
     Indication: THROMBOSIS
     Dosage: 81 MG, UNK
     Route: 065
     Dates: start: 20100101

REACTIONS (5)
  - HAEMATOCHEZIA [None]
  - CONTUSION [None]
  - BLOOD URINE PRESENT [None]
  - HAEMORRHAGIC DIATHESIS [None]
  - EPISTAXIS [None]
